FAERS Safety Report 5110681-5 (Version None)
Quarter: 2006Q3

REPORT INFORMATION
  Report Type: 
  Country: None (occurrence: None)
  Receive Date: 20060921
  Receipt Date: 20060830
  Transmission Date: 20061208
  Serious: Yes (Death, Hospitalization)
  Sender: FDA-Public Use
  Company Number: US-MERCK-0609USA00321

PATIENT
  Age: 21 Year
  Sex: Female

DRUGS (4)
  1. MEFOXIN [Suspect]
     Indication: MYCOBACTERIUM ABSCESSUS INFECTION
     Route: 065
  2. VALGANCICLOVIR HYDROCHLORIDE [Concomitant]
     Route: 065
  3. AMIKACIN [Concomitant]
     Route: 065
  4. KANAMYCIN [Concomitant]
     Route: 065

REACTIONS (6)
  - CARDIAC ARREST [None]
  - DRUG INEFFECTIVE [None]
  - ERYTHEMA MULTIFORME [None]
  - MYCOBACTERIAL INFECTION [None]
  - SEROMA [None]
  - SKIN INFECTION [None]
